FAERS Safety Report 7301941-8 (Version None)
Quarter: 2011Q1

REPORT INFORMATION
  Report Type: 
  Country: None (occurrence: None)
  Receive Date: 20110218
  Receipt Date: 20110211
  Transmission Date: 20110831
  Serious: Yes (Other)
  Sender: FDA-Public Use
  Company Number: GB-ROCHE-759387

PATIENT
  Age: 59 Year
  Sex: Female

DRUGS (1)
  1. ROACTEMRA [Suspect]
     Route: 065

REACTIONS (3)
  - BLINDNESS [None]
  - EYE PAIN [None]
  - LENS DISORDER [None]
